FAERS Safety Report 9303626 (Version 1)
Quarter: 2013Q2

REPORT INFORMATION
  Report Type: Spontaneous
  Country: US (occurrence: US)
  Receive Date: 20130522
  Receipt Date: 20130522
  Transmission Date: 20140414
  Serious: Yes (Hospitalization)
  Sender: FDA-Public Use
  Company Number: US-PFIZER INC-2012069335

PATIENT
  Age: 45 Year
  Sex: Female
  Weight: 62 kg

DRUGS (8)
  1. LYRICA [Suspect]
     Indication: EPILEPSY
     Dosage: 200 MG IN MORNING AND 300 MG AT BED TIME, 2X/DAY
  2. KEPPRA [Concomitant]
     Indication: EPILEPSY
     Dosage: 1500 MG, 2X/DAY
  3. LAMICTAL [Concomitant]
     Indication: EPILEPSY
     Dosage: 100 MG, 2X/DAY
  4. SABRIL [Concomitant]
     Indication: EPILEPSY
     Dosage: 250 MG, 2X/DAY
  5. AMBIEN [Concomitant]
  6. POTASSIUM [Concomitant]
     Dosage: 30 MG, 1X/DAY
  7. LACTULOSE [Concomitant]
  8. IRON [Concomitant]
     Dosage: 50 MG, 1X/DAY

REACTIONS (1)
  - Grand mal convulsion [Recovered/Resolved]
